FAERS Safety Report 9126894 (Version 2)
Quarter: 2013Q1

REPORT INFORMATION
  Report Type: Spontaneous
  Country: DE (occurrence: DE)
  Receive Date: 20130228
  Receipt Date: 20130306
  Transmission Date: 20140127
  Serious: Yes (Death, Other)
  Sender: FDA-Public Use
  Company Number: DE-BRISTOL-MYERS SQUIBB COMPANY-17422080

PATIENT
  Sex: 0

DRUGS (1)
  1. NULOJIX [Suspect]
     Indication: RENAL TRANSPLANT

REACTIONS (2)
  - Death [Fatal]
  - Angina pectoris [Unknown]
